FAERS Safety Report 18597480 (Version 1)
Quarter: 2020Q4

REPORT INFORMATION
  Report Type: Spontaneous
  Country: HU (occurrence: HU)
  Receive Date: 20201209
  Receipt Date: 20201209
  Transmission Date: 20210114
  Serious: Yes (Life-Threatening, Hospitalization, Other)
  Sender: FDA-Public Use
  Company Number: HU-PFIZER INC-2020478346

PATIENT
  Age: 59 Year
  Sex: Female

DRUGS (9)
  1. METOPROLOL. [Interacting]
     Active Substance: METOPROLOL
     Dosage: UNK
     Route: 065
  2. DOXAZOSIN MESILATE [Suspect]
     Active Substance: DOXAZOSIN MESYLATE
     Dosage: UNK
     Route: 065
  3. TACROLIMUS. [Interacting]
     Active Substance: TACROLIMUS
     Dosage: 9 MG, 1X/DAY
     Route: 065
  4. CARVEDILOL. [Interacting]
     Active Substance: CARVEDILOL
     Dosage: 25 MG, 2X/DAY
     Route: 065
     Dates: start: 2020
  5. GUANFACINE. [Concomitant]
     Active Substance: GUANFACINE
     Route: 065
  6. EVEROLIMUS. [Interacting]
     Active Substance: EVEROLIMUS
     Dosage: 1.75 MG, 1X/DAY
     Route: 065
  7. TACROLIMUS. [Interacting]
     Active Substance: TACROLIMUS
     Dosage: 0.5 MG, 1X/DAY
     Route: 065
  8. ALLOPURINOL. [Interacting]
     Active Substance: ALLOPURINOL
     Dosage: UNK
     Route: 065
  9. EVEROLIMUS. [Interacting]
     Active Substance: EVEROLIMUS
     Dosage: 0.75 MG, 1X/DAY
     Route: 065

REACTIONS (19)
  - Drug level increased [Unknown]
  - Myocardial infarction [Unknown]
  - Blood urea increased [Unknown]
  - Urinary tract infection [Unknown]
  - Blood pressure increased [Unknown]
  - Cardiac aneurysm [Unknown]
  - Glomerular filtration rate decreased [Unknown]
  - Transplant rejection [Unknown]
  - Anaemia [Unknown]
  - Cardiac failure [Unknown]
  - Renal disorder [Unknown]
  - Hypertension [Unknown]
  - Renal failure [Not Recovered/Not Resolved]
  - Blood pressure increased [Recovered/Resolved]
  - Cardiac disorder [Unknown]
  - Drug interaction [Unknown]
  - Blood uric acid increased [Unknown]
  - Drug level above therapeutic [Unknown]
  - Electrocardiogram ST-T segment abnormal [Unknown]

NARRATIVE: CASE EVENT DATE: 2020
